FAERS Safety Report 6663735-6 (Version None)
Quarter: 2010Q1

REPORT INFORMATION
  Report Type: 
  Country: None (occurrence: None)
  Receive Date: 20100331
  Receipt Date: 20100331
  Transmission Date: 20100710
  Serious: Yes (Life-Threatening)
  Sender: FDA-Public Use
  Company Number: None

PATIENT
  Age: 68 Year
  Sex: Male
  Weight: 87 kg

DRUGS (1)
  1. CLOPIDOGREL [Suspect]
     Indication: ANGINA UNSTABLE
     Dosage: 300MG ONCE PO
     Route: 048
     Dates: start: 20090812, end: 20090812

REACTIONS (2)
  - PHARYNGEAL OEDEMA [None]
  - RASH [None]
